FAERS Safety Report 14160077 (Version 1)
Quarter: 2017Q4

REPORT INFORMATION
  Report Type: Spontaneous
  Country: JP (occurrence: JP)
  Receive Date: 20171106
  Receipt Date: 20171106
  Transmission Date: 20180321
  Serious: Yes (Death, Other)
  Sender: FDA-Public Use
  Company Number: JP-CIPLA LTD.-2017JP18884

PATIENT

DRUGS (2)
  1. IRINOTECAN [Suspect]
     Active Substance: IRINOTECAN
     Indication: NEUROENDOCRINE TUMOUR OF THE LUNG
     Dosage: UNK, THREE COURSES
     Route: 065
     Dates: start: 201504
  2. CARBOPLATIN. [Suspect]
     Active Substance: CARBOPLATIN
     Indication: NEUROENDOCRINE TUMOUR OF THE LUNG
     Dosage: UNK, THREE COURSES
     Route: 065
     Dates: start: 201504

REACTIONS (6)
  - Metastases to bone [Unknown]
  - Neutropenia [Unknown]
  - Death [Fatal]
  - General physical health deterioration [Unknown]
  - Decreased appetite [Unknown]
  - Diarrhoea [Unknown]
